FAERS Safety Report 22077543 (Version 1)
Quarter: 2023Q1

REPORT INFORMATION
  Report Type: Spontaneous
  Country: US (occurrence: None)
  Receive Date: 20230309
  Receipt Date: 20230309
  Transmission Date: 20230417
  Serious: Yes (Other)
  Sender: FDA-Public Use
  Company Number: US-ROCHE-3281033

PATIENT
  Age: 50 Year
  Sex: Female
  Weight: 83.990 kg

DRUGS (2)
  1. HERCEPTIN [Suspect]
     Active Substance: TRASTUZUMAB
     Indication: Breast cancer metastatic
     Route: 041
     Dates: start: 20170120
  2. DEXAMETHASONE [Concomitant]
     Active Substance: DEXAMETHASONE
     Route: 048
     Dates: start: 20230202, end: 20230209

REACTIONS (10)
  - Lip swelling [Unknown]
  - Paraesthesia oral [Unknown]
  - Sensation of foreign body [Unknown]
  - Myalgia [Unknown]
  - Rash [Recovering/Resolving]
  - Pain [Recovered/Resolved]
  - Arthralgia [Recovering/Resolving]
  - Hypoaesthesia [Recovered/Resolved]
  - Paraesthesia [Recovered/Resolved]
  - Dysgeusia [Recovering/Resolving]

NARRATIVE: CASE EVENT DATE: 20221215
